FAERS Safety Report 15051940 (Version 1)
Quarter: 2018Q2

REPORT INFORMATION
  Report Type: Spontaneous
  Country: US (occurrence: US)
  Receive Date: 20180622
  Receipt Date: 20180622
  Transmission Date: 20180711
  Serious: No
  Sender: FDA-Public Use
  Company Number: US-AMGEN-USASP2015015506

PATIENT
  Sex: Female

DRUGS (1)
  1. XGEVA [Suspect]
     Active Substance: DENOSUMAB
     Indication: PRODUCT USED FOR UNKNOWN INDICATION
     Dosage: UNK
     Route: 065

REACTIONS (6)
  - Gingival pain [Unknown]
  - Tooth disorder [Unknown]
  - Hypoaesthesia [Unknown]
  - Gingival swelling [Unknown]
  - Gingival erythema [Unknown]
  - Oral infection [Unknown]

NARRATIVE: CASE EVENT DATE: 2014
